FAERS Safety Report 4756653-1 (Version None)
Quarter: 2005Q3

REPORT INFORMATION
  Report Type: 
  Country: None (occurrence: None)
  Receive Date: 20050830
  Receipt Date: 20050825
  Transmission Date: 20060218
  Serious: Yes (Other)
  Sender: FDA-Public Use
  Company Number: US-GLAXOSMITHKLINE-A0571891A

PATIENT
  Sex: Female

DRUGS (4)
  1. PAXIL [Suspect]
     Dosage: 160MG PER DAY
     Route: 048
  2. LAMICTAL [Concomitant]
  3. AMBIEN [Concomitant]
  4. TEMAZEPAM [Concomitant]

REACTIONS (3)
  - OVERDOSE [None]
  - SPLEEN DISORDER [None]
  - THERAPEUTIC RESPONSE UNEXPECTED [None]
